FAERS Safety Report 16986760 (Version 3)
Quarter: 2019Q4

REPORT INFORMATION
  Report Type: Report from Study
  Country: KR (occurrence: KR)
  Receive Date: 20191101
  Receipt Date: 20191127
  Transmission Date: 20200122
  Serious: Yes (Death)
  Sender: FDA-Public Use
  Company Number: KR-CELLTRION INC.-2019KR025951

PATIENT

DRUGS (3)
  1. TRUXIMA [Suspect]
     Active Substance: RITUXIMAB-ABBS
     Dosage: 623 MG EVERY 3 WEEKS
     Route: 042
     Dates: start: 20190809
  2. CHOP [Suspect]
     Active Substance: CYCLOPHOSPHAMIDE\DOXORUBICIN\PREDNISONE\VINCRISTINE
     Indication: DIFFUSE LARGE B-CELL LYMPHOMA
     Dosage: UNK, 3RD CHOP
     Dates: start: 20190809
  3. TRUXIMA [Suspect]
     Active Substance: RITUXIMAB-ABBS
     Indication: DIFFUSE LARGE B-CELL LYMPHOMA
     Dosage: 623 MG EVERY 3 WEEKS
     Route: 042
     Dates: start: 20190719

REACTIONS (1)
  - Death [Fatal]

NARRATIVE: CASE EVENT DATE: 20190811
